FAERS Safety Report 5209134-5 (Version None)
Quarter: 2007Q1

REPORT INFORMATION
  Report Type: 
  Country: None (occurrence: None)
  Receive Date: 20070116
  Receipt Date: 20070108
  Transmission Date: 20070707
  Serious: Yes (Hospitalization)
  Sender: FDA-Public Use
  Company Number: FR-MERCK-0701FRA00025

PATIENT
  Age: 15 Year
  Sex: Male
  Weight: 57 kg

DRUGS (16)
  1. CANCIDAS [Suspect]
     Indication: PYREXIA
     Route: 042
     Dates: start: 20061120, end: 20061120
  2. CANCIDAS [Suspect]
     Route: 042
     Dates: start: 20061121, end: 20061202
  3. ASPARAGINASE (AS DRUG) [Suspect]
     Indication: ACUTE LYMPHOCYTIC LEUKAEMIA
     Route: 042
     Dates: start: 20061117, end: 20061201
  4. VALACYCLOVIR HYDROCHLORIDE [Suspect]
     Indication: PYREXIA
     Route: 048
     Dates: start: 20061115, end: 20061203
  5. VANCOMYCIN [Suspect]
     Indication: PYREXIA
     Route: 048
     Dates: start: 20061125, end: 20061202
  6. CIPROFLOXACIN HYDROCHLORIDE [Concomitant]
     Indication: PYREXIA
     Route: 042
     Dates: start: 20061109, end: 20061202
  7. CIPROFLOXACIN HYDROCHLORIDE [Concomitant]
     Route: 042
     Dates: start: 20061203
  8. PIPERACILLIN SODIUM AND TAZOBACTAM SODIUM [Concomitant]
     Indication: PYREXIA
     Route: 042
     Dates: start: 20061109, end: 20061202
  9. PIPERACILLIN SODIUM AND TAZOBACTAM SODIUM [Concomitant]
     Route: 042
     Dates: start: 20061203
  10. VINCRISTINE SULFATE [Concomitant]
     Indication: ACUTE LYMPHOCYTIC LEUKAEMIA
     Route: 042
     Dates: start: 20061117, end: 20061117
  11. VINCRISTINE SULFATE [Concomitant]
     Route: 042
     Dates: start: 20061124, end: 20061124
  12. VINCRISTINE SULFATE [Concomitant]
     Route: 042
     Dates: start: 20061201, end: 20061201
  13. CYCLOPHOSPHAMIDE [Concomitant]
     Indication: ACUTE LYMPHOCYTIC LEUKAEMIA
     Route: 042
     Dates: start: 20061117, end: 20061117
  14. METHYLPREDNISOLONE SODIUM SUCCINATE [Concomitant]
     Route: 042
     Dates: start: 20061117
  15. HEPARIN [Concomitant]
     Route: 042
  16. OMEPRAZOLE [Concomitant]
     Route: 048
     Dates: start: 20061115

REACTIONS (1)
  - RENAL FAILURE ACUTE [None]
